FAERS Safety Report 5940037-4 (Version None)
Quarter: 2008Q4

REPORT INFORMATION
  Report Type: 
  Country: None (occurrence: None)
  Receive Date: 20081104
  Receipt Date: 20081026
  Transmission Date: 20090506
  Serious: Yes (Other)
  Sender: FDA-Public Use
  Company Number: PHHY2008BR26246

PATIENT
  Age: 43 Year
  Sex: Male

DRUGS (1)
  1. DIOVAN HCT [Suspect]
     Indication: HYPERTENSION
     Dosage: 160/12.5 MG, 1 TABLET/DAY
     Route: 048
     Dates: start: 20081001, end: 20081014

REACTIONS (5)
  - AURICULAR SWELLING [None]
  - LIP SWELLING [None]
  - PRURITUS GENERALISED [None]
  - SKIN PLAQUE [None]
  - URTICARIA [None]
